FAERS Safety Report 17309286 (Version 1)
Quarter: 2020Q1

REPORT INFORMATION
  Report Type: Spontaneous
  Country: US (occurrence: US)
  Receive Date: 20200123
  Receipt Date: 20200123
  Transmission Date: 20200409
  Serious: No
  Sender: FDA-Public Use
  Company Number: US-GW PHARMA-202001USGW00187

PATIENT

DRUGS (2)
  1. EPIDIOLEX [Suspect]
     Active Substance: CANNABIDIOL
     Indication: LENNOX-GASTAUT SYNDROME
     Dosage: 340 MILLIGRAM, BID
     Route: 048
     Dates: start: 20191115
  2. EPIDIOLEX [Suspect]
     Active Substance: CANNABIDIOL
     Dosage: ANOTHER BATCH NUMBER ADDED
     Route: 048

REACTIONS (2)
  - Somnolence [Not Recovered/Not Resolved]
  - Decreased appetite [Not Recovered/Not Resolved]

NARRATIVE: CASE EVENT DATE: 201912
